FAERS Safety Report 23197082 (Version 1)
Quarter: 2023Q4

REPORT INFORMATION
  Report Type: Spontaneous
  Country: GB (occurrence: None)
  Receive Date: 20231117
  Receipt Date: 20231117
  Transmission Date: 20240109
  Serious: Yes (Other)
  Sender: FDA-Public Use
  Company Number: 2023A256646

PATIENT
  Age: 51 Year
  Sex: Female
  Weight: 68.7 kg

DRUGS (3)
  1. FULVESTRANT [Suspect]
     Active Substance: FULVESTRANT
     Indication: Breast cancer metastatic
     Dosage: 500 MG, Q4W
     Dates: start: 20230608
  2. ALPELISIB [Suspect]
     Active Substance: ALPELISIB
     Indication: Breast cancer metastatic
     Dosage: 250 MG ONCE A DAY
     Dates: start: 202306
  3. METFORMIN [Concomitant]
     Active Substance: METFORMIN HYDROCHLORIDE
     Indication: Hyperglycaemia
     Dosage: 500 MG, BID
     Dates: start: 202310

REACTIONS (1)
  - Hyperglycaemia [Not Recovered/Not Resolved]

NARRATIVE: CASE EVENT DATE: 20230719
